FAERS Safety Report 8376136-X (Version None)
Quarter: 2012Q2

REPORT INFORMATION
  Report Type: 
  Country: None (occurrence: None)
  Receive Date: 20120522
  Receipt Date: 20120518
  Transmission Date: 20120825
  Serious: Yes (Death)
  Sender: FDA-Public Use
  Company Number: PHHY2012CA005505

PATIENT
  Sex: Female
  Weight: 81 kg

DRUGS (4)
  1. ZOLEDRONOC ACID [Suspect]
     Dosage: UNK UKN, UNK
     Route: 042
     Dates: start: 20110415, end: 20110415
  2. VITAMIN D [Concomitant]
     Dosage: 800 IU, DAILY
  3. ZOLEDRONOC ACID [Suspect]
     Indication: OSTEOPOROSIS
     Dosage: UNK UKN, UNK
     Route: 042
     Dates: start: 20100401, end: 20110415
  4. CALCIUM [Concomitant]
     Dosage: 1000 MG DAILY

REACTIONS (1)
  - DEATH [None]
